FAERS Safety Report 5352119-9 (Version None)
Quarter: 2007Q2

REPORT INFORMATION
  Report Type: 
  Country: None (occurrence: None)
  Receive Date: 20070611
  Receipt Date: 20070529
  Transmission Date: 20071010
  Serious: Yes (Hospitalization)
  Sender: FDA-Public Use
  Company Number: FR-JNJFOC-20070507227

PATIENT
  Age: 61 Year
  Sex: Female
  Weight: 87 kg

DRUGS (4)
  1. REMICADE [Suspect]
     Indication: PSORIATIC ARTHROPATHY
     Route: 042
  2. NOVATREX [Suspect]
     Indication: PSORIATIC ARTHROPATHY
     Route: 048
  3. DOLIPRANE [Concomitant]
  4. EUPANTOL [Concomitant]

REACTIONS (2)
  - ACCIDENTAL NEEDLE STICK [None]
  - MYCOBACTERIUM MARINUM INFECTION [None]
